FAERS Safety Report 13987384 (Version 1)
Quarter: 2017Q3

REPORT INFORMATION
  Report Type: Spontaneous
  Country: CA (occurrence: CA)
  Receive Date: 20170919
  Receipt Date: 20170919
  Transmission Date: 20171128
  Serious: Yes (Other)
  Sender: FDA-Public Use
  Company Number: CA-SILVERGATE PHARMACEUTICALS, INC.-2017SIL00013

PATIENT

DRUGS (1)
  1. METHOTREXATE. [Suspect]
     Active Substance: METHOTREXATE
     Indication: ACUTE LYMPHOCYTIC LEUKAEMIA
     Dosage: 5 G/M2, OVER 24 HOURS
     Route: 065

REACTIONS (2)
  - Toxicity to various agents [Recovered/Resolved]
  - Hypertension [Recovered/Resolved]
